FAERS Safety Report 8948095 (Version 1)
Quarter: 2012Q4

REPORT INFORMATION
  Report Type: Spontaneous
  Country: US (occurrence: None)
  Receive Date: 20121203
  Receipt Date: 20121203
  Transmission Date: 20130627
  Serious: Yes (Hospitalization)
  Sender: FDA-Public Use
  Company Number: None

PATIENT
  Age: 87 Year
  Sex: Female
  Weight: 66.3 kg

DRUGS (2)
  1. QUETIAPINE [Suspect]
     Route: 048
  2. LORAZEPAM [Suspect]
     Route: 048

REACTIONS (2)
  - Sedation [None]
  - Respiratory depression [None]
